FAERS Safety Report 8577791-1 (Version None)
Quarter: 2012Q3

REPORT INFORMATION
  Report Type: 
  Country: None (occurrence: None)
  Receive Date: 20120808
  Receipt Date: 20120801
  Transmission Date: 20120928
  Serious: No
  Sender: FDA-Public Use
  Company Number: US-BIOGENIDEC-2011BI033607

PATIENT
  Age: 45 Year
  Sex: Female

DRUGS (4)
  1. AMPYRA [Concomitant]
  2. TYSABRI [Suspect]
     Indication: MULTIPLE SCLEROSIS
     Route: 042
     Dates: start: 20070124, end: 20080529
  3. GILENYA [Concomitant]
  4. TYSABRI [Suspect]
     Route: 042
     Dates: start: 20110908

REACTIONS (2)
  - FUNGAL INFECTION [None]
  - FATIGUE [None]
